FAERS Safety Report 23269594 (Version 1)
Quarter: 2023Q4

REPORT INFORMATION
  Report Type: Spontaneous
  Country: FR (occurrence: FR)
  Receive Date: 20231207
  Receipt Date: 20231207
  Transmission Date: 20240109
  Serious: Yes (Other)
  Sender: FDA-Public Use
  Company Number: FR-DENTSPLY-2023SCDP000402

PATIENT
  Age: 43 Year
  Sex: Male

DRUGS (2)
  1. XYLOCAINE [Suspect]
     Active Substance: LIDOCAINE HYDROCHLORIDE
     Indication: Skin disorder
     Dosage: UNK DOSE OF XYLOCAINE URETHRAL GEL
     Route: 061
  2. LIDOCAINE\PRILOCAINE [Suspect]
     Active Substance: LIDOCAINE\PRILOCAINE
     Indication: Skin disorder
     Dosage: UNK DOSE OF EMLA CREAM (USED ABOUT 30 TUBES OF CREAM PER MONTH)
     Route: 061

REACTIONS (4)
  - Off label use [Unknown]
  - Product availability issue [Unknown]
  - Overdose [Unknown]
  - Adverse drug reaction [Unknown]
